FAERS Safety Report 7034513-3 (Version None)
Quarter: 2010Q4

REPORT INFORMATION
  Report Type: 
  Country: None (occurrence: None)
  Receive Date: 20101008
  Receipt Date: 20101001
  Transmission Date: 20110411
  Serious: Yes (Death, Other)
  Sender: FDA-Public Use
  Company Number: GB-ASTRAZENECA-2010SE46009

PATIENT
  Age: 75 Year
  Sex: Female

DRUGS (14)
  1. LISINOPRIL [Suspect]
     Indication: HYPERTENSION
     Route: 048
     Dates: start: 20020301
  2. BUDESONIDE [Suspect]
     Indication: ASTHMA
     Route: 055
     Dates: start: 20020301
  3. ARAVA [Suspect]
     Indication: RHEUMATOID ARTHRITIS
     Route: 048
     Dates: start: 20020301
  4. ASPIRIN [Suspect]
     Indication: PAIN
     Dates: start: 20020301
  5. ATORVASTATIN CALCIUM [Suspect]
     Indication: HYPERCHOLESTEROLAEMIA
     Dates: start: 19990101
  6. ACETAMINOPHEN AND CODEINE PHOSPHATE [Suspect]
     Indication: RHEUMATOID ARTHRITIS
     Dates: start: 20020301
  7. LANSOPRAZOLE [Suspect]
     Indication: DUODENAL ULCER
     Dates: start: 20010301
  8. NITROGLYCERIN [Suspect]
     Indication: PAIN
     Dates: start: 20020301
  9. QUININE SULFATE [Suspect]
     Indication: MUSCLE SPASMS
  10. DILTIAZEM HYDROCHLORIDE [Concomitant]
     Indication: HYPERTENSION
     Dates: start: 20020301
  11. FENTANYL [Concomitant]
     Indication: ANAESTHESIA PROCEDURE
     Route: 042
     Dates: start: 20020301, end: 20020301
  12. MIDAZOLAM HCL [Concomitant]
     Indication: ANAESTHESIA PROCEDURE
     Route: 042
     Dates: start: 20020301, end: 20020301
  13. PANCURONIUM BROMIDE [Concomitant]
     Indication: MUSCLE RELAXANT THERAPY
     Dates: start: 20020301, end: 20020301
  14. PROPOFOL [Concomitant]
     Indication: ANAESTHESIA PROCEDURE
     Route: 042
     Dates: start: 20020301, end: 20020301

REACTIONS (25)
  - ACTIVATED PARTIAL THROMBOPLASTIN TIME PROLONGED [None]
  - ACUTE HEPATIC FAILURE [None]
  - ASTHMA [None]
  - CARDIAC FAILURE [None]
  - COAGULOPATHY [None]
  - CORONARY ARTERY DISEASE [None]
  - DUODENAL ULCER [None]
  - GASTRIC ULCER [None]
  - GASTROINTESTINAL HAEMORRHAGE [None]
  - GENERAL PHYSICAL HEALTH DETERIORATION [None]
  - HAEMATEMESIS [None]
  - HAEMODIALYSIS [None]
  - HEPATIC CONGESTION [None]
  - HEPATIC ISCHAEMIA [None]
  - HEPATOCELLULAR INJURY [None]
  - HEPATORENAL FAILURE [None]
  - HEPATOTOXICITY [None]
  - HYPERTENSION [None]
  - HYPOVOLAEMIA [None]
  - LABILE BLOOD PRESSURE [None]
  - LEFT VENTRICULAR DYSFUNCTION [None]
  - MUSCLE SPASMS [None]
  - PROTHROMBIN TIME PROLONGED [None]
  - RENAL FAILURE [None]
  - RHEUMATOID ARTHRITIS [None]
